FAERS Safety Report 12807959 (Version 3)
Quarter: 2016Q4

REPORT INFORMATION
  Report Type: Spontaneous
  Country: VE (occurrence: VE)
  Receive Date: 20161004
  Receipt Date: 20161108
  Transmission Date: 20170207
  Serious: Yes (Death, Other)
  Sender: FDA-Public Use
  Company Number: VE-PFIZER INC-2016462606

PATIENT
  Age: 74 Year
  Sex: Male

DRUGS (2)
  1. VORCUM [Suspect]
     Active Substance: VORICONAZOLE
     Indication: ANTIBIOTIC THERAPY
     Dosage: 200 MG, 2X/DAY (EVERY 12 HOURS)
     Route: 042
     Dates: start: 201602
  2. COLISTINA [Concomitant]
     Active Substance: COLISTIMETHATE SODIUM
     Indication: ANTIBIOTIC THERAPY
     Dosage: 200 MG, 2X/DAY
     Route: 042
     Dates: start: 201602

REACTIONS (12)
  - Pneumonia pseudomonal [Unknown]
  - Atrial fibrillation [Unknown]
  - Mechanical ventilation complication [Unknown]
  - Candida infection [Unknown]
  - Urinary tract infection [Unknown]
  - Pseudomonas infection [Unknown]
  - Mucocutaneous candidiasis [Unknown]
  - Hypernatraemia [Unknown]
  - Death [Fatal]
  - Interstitial lung disease [Unknown]
  - Aspergillus infection [Unknown]
  - Parainfluenzae virus infection [Unknown]

NARRATIVE: CASE EVENT DATE: 20160219
